FAERS Safety Report 8145273-7 (Version None)
Quarter: 2012Q1

REPORT INFORMATION
  Report Type: 
  Country: None (occurrence: None)
  Receive Date: 20120217
  Receipt Date: 20120209
  Transmission Date: 20120608
  Serious: Yes (Disabling)
  Sender: FDA-Public Use
  Company Number: PHHY2012GB011293

PATIENT
  Age: 83 Year
  Sex: Male

DRUGS (8)
  1. AMIODARONE HCL [Suspect]
     Route: 042
  2. SIMVASTATIN [Concomitant]
  3. AMIODARONE HCL [Suspect]
     Dosage: 200 MG, BID
     Route: 048
  4. ALLOPURINOL [Concomitant]
  5. PERINDOPRIL [Concomitant]
  6. TOLTERODINE TARTRATE [Concomitant]
  7. AMIODARONE HCL [Suspect]
     Dosage: 100 MG, BID
     Route: 048
  8. ASPIRIN [Concomitant]

REACTIONS (3)
  - DELUSION [None]
  - MEMORY IMPAIRMENT [None]
  - PSYCHOTIC DISORDER [None]
